FAERS Safety Report 8823292 (Version 3)
Quarter: 2013Q2

REPORT INFORMATION
  Report Type: Spontaneous
  Country: US (occurrence: US)
  Receive Date: 20121003
  Receipt Date: 20130531
  Transmission Date: 20140414
  Serious: Yes (Other)
  Sender: FDA-Public Use
  Company Number: US-ASTRAZENECA-2012SE74276

PATIENT
  Age: 68 Year
  Sex: Female
  Weight: 86.2 kg

DRUGS (4)
  1. ARIMIDEX [Suspect]
     Indication: BREAST CANCER
     Route: 048
  2. TOPROL [Concomitant]
     Indication: HYPERTENSION
     Route: 048
     Dates: start: 2007
  3. THYROID MEDICATION [Concomitant]
     Indication: THYROID DISORDER
     Dates: start: 2006
  4. XANAX [Concomitant]
     Indication: ANXIETY
     Dates: start: 2007

REACTIONS (6)
  - Road traffic accident [Unknown]
  - Movement disorder [Unknown]
  - Weight increased [Unknown]
  - Exostosis [Unknown]
  - Urticaria [Unknown]
  - Drug dose omission [Unknown]
